FAERS Safety Report 17951884 (Version 1)
Quarter: 2020Q2

REPORT INFORMATION
  Report Type: Spontaneous
  Country: US (occurrence: US)
  Receive Date: 20200626
  Receipt Date: 20200626
  Transmission Date: 20200714
  Serious: Yes (Other)
  Sender: FDA-Public Use
  Company Number: US-LEUCADIA PHARMACEUTICALS-2020LEU000177

PATIENT

DRUGS (6)
  1. VASOPRESSIN. [Concomitant]
     Active Substance: VASOPRESSIN
     Indication: PROPHYLAXIS
     Dosage: UNK
  2. PENTOBARBITAL SODIUM. [Suspect]
     Active Substance: PENTOBARBITAL SODIUM
     Dosage: 1 MG/KG TITRATED UP TO 3 MG/KG
     Route: 042
  3. VASOPRESSIN. [Concomitant]
     Active Substance: VASOPRESSIN
     Indication: MEAN ARTERIAL PRESSURE
  4. PENTOBARBITAL SODIUM. [Suspect]
     Active Substance: PENTOBARBITAL SODIUM
     Indication: PRODUCT USED FOR UNKNOWN INDICATION
     Dosage: BOLUS OF 10MG/KG OVER 30 MIN THEN 15MG/KG OVER 3H
     Route: 042
  5. NOREPINEPHRINE. [Concomitant]
     Active Substance: NOREPINEPHRINE
     Indication: MEAN ARTERIAL PRESSURE
  6. NOREPINEPHRINE. [Concomitant]
     Active Substance: NOREPINEPHRINE
     Indication: PROPHYLAXIS

REACTIONS (1)
  - Hypokalaemia [Recovered/Resolved]
